FAERS Safety Report 5588704-9 (Version None)
Quarter: 2008Q1

REPORT INFORMATION
  Report Type: 
  Country: None (occurrence: None)
  Receive Date: 20080111
  Receipt Date: 20080103
  Transmission Date: 20080703
  Serious: Yes (Other)
  Sender: FDA-Public Use
  Company Number: B0359557A

PATIENT
  Sex: Male

DRUGS (3)
  1. SEROXAT [Suspect]
     Route: 065
     Dates: start: 20000630
  2. PROZAC [Concomitant]
     Dates: start: 19961210
  3. CIPRAMIL [Concomitant]
     Dates: start: 20010726

REACTIONS (11)
  - AGGRESSION [None]
  - AGITATION [None]
  - ANXIETY [None]
  - DRUG WITHDRAWAL SYNDROME [None]
  - HYPERHIDROSIS [None]
  - LETHARGY [None]
  - NAUSEA [None]
  - SLEEP DISORDER [None]
  - STOMACH DISCOMFORT [None]
  - SUICIDAL IDEATION [None]
  - VOMITING [None]
